FAERS Safety Report 15484523 (Version 2)
Quarter: 2018Q4

REPORT INFORMATION
  Report Type: Report from Study
  Country: US (occurrence: US)
  Receive Date: 20181010
  Receipt Date: 20181012
  Transmission Date: 20190205
  Serious: Yes (Hospitalization, Other)
  Sender: FDA-Public Use
  Company Number: US-TAKEDA-2018TUS029271

PATIENT
  Sex: Male

DRUGS (4)
  1. ADALIMUMAB [Concomitant]
     Active Substance: ADALIMUMAB
     Dosage: UNK
  2. USTEKINUMAB [Concomitant]
     Active Substance: USTEKINUMAB
     Dosage: UNK
  3. VEDOLIZUMAB [Suspect]
     Active Substance: VEDOLIZUMAB
     Indication: PRODUCT USED FOR UNKNOWN INDICATION
     Dosage: UNK
     Route: 042
     Dates: start: 20180726
  4. BUDESONIDE. [Concomitant]
     Active Substance: BUDESONIDE
     Dosage: 9 MG, QD

REACTIONS (1)
  - Small intestinal obstruction [Recovered/Resolved]

NARRATIVE: CASE EVENT DATE: 20180405
